FAERS Safety Report 25139028 (Version 1)
Quarter: 2025Q1

REPORT INFORMATION
  Report Type: Spontaneous
  Country: US (occurrence: US)
  Receive Date: 20250331
  Receipt Date: 20250331
  Transmission Date: 20250409
  Serious: Yes (Life-Threatening, Hospitalization)
  Sender: ACCORD
  Company Number: US-MLMSERVICE-20250317-PI445625-00152-1

PATIENT
  Age: 61 Year
  Sex: Female

DRUGS (1)
  1. FLUOROURACIL [Suspect]
     Active Substance: FLUOROURACIL
     Indication: Small intestine carcinoma stage II

REACTIONS (4)
  - Cardiomyopathy acute [Recovered/Resolved]
  - Arteriospasm coronary [Recovered/Resolved]
  - Arteriosclerosis coronary artery [Recovered/Resolved]
  - Prinzmetal angina [Recovered/Resolved]
